FAERS Safety Report 22595598 (Version 3)
Quarter: 2023Q4

REPORT INFORMATION
  Report Type: Report from Study
  Country: CA (occurrence: CA)
  Receive Date: 20230613
  Receipt Date: 20231127
  Transmission Date: 20240110
  Serious: Yes (Other)
  Sender: FDA-Public Use
  Company Number: CA-JNJFOC-20230557190

PATIENT
  Age: 37 Year
  Sex: Male

DRUGS (3)
  1. SIMPONI [Suspect]
     Active Substance: GOLIMUMAB
     Indication: Ankylosing spondylitis
     Route: 058
     Dates: start: 20180110
  2. SIMPONI [Suspect]
     Active Substance: GOLIMUMAB
     Dosage: 50.00 MG / 0.50 ML?THERAPY START DATE-31/MAY/2023
     Route: 058
  3. SIMPONI [Suspect]
     Active Substance: GOLIMUMAB
     Dosage: 50.00 MG / 0.50 ML
     Route: 058

REACTIONS (6)
  - Uveitis [Not Recovered/Not Resolved]
  - Device issue [Unknown]
  - Product dose omission issue [Unknown]
  - Incorrect dose administered [Unknown]
  - Needle issue [Unknown]
  - Inappropriate schedule of product administration [Unknown]

NARRATIVE: CASE EVENT DATE: 20230501
